FAERS Safety Report 8396367-2 (Version None)
Quarter: 2012Q2

REPORT INFORMATION
  Report Type: 
  Country: None (occurrence: None)
  Receive Date: 20120530
  Receipt Date: 20120523
  Transmission Date: 20120825
  Serious: Yes (Hospitalization)
  Sender: FDA-Public Use
  Company Number: US-MERCK-1205USA04728

PATIENT
  Age: 66 Year
  Sex: Female

DRUGS (6)
  1. VITAMIN D (UNSPECIFIED) [Concomitant]
     Route: 065
  2. METROGEL [Concomitant]
     Route: 065
  3. ZETIA [Suspect]
     Indication: HYPERLIPIDAEMIA
     Route: 048
     Dates: start: 20120201
  4. VAGIFEM [Concomitant]
     Route: 065
  5. OMEGA-3 MARINE TRIGLYCERIDES [Concomitant]
     Route: 065
  6. MIRALAX [Concomitant]
     Route: 065

REACTIONS (1)
  - BRADYCARDIA [None]
